FAERS Safety Report 11777433 (Version 1)
Quarter: 2015Q4

REPORT INFORMATION
  Report Type: Spontaneous
  Country: US (occurrence: US)
  Receive Date: 20151125
  Receipt Date: 20151125
  Transmission Date: 20160304
  Serious: No
  Sender: FDA-Public Use
  Company Number: US-BAYER-2015-469562

PATIENT
  Age: 65 Year
  Sex: Female
  Weight: 54.88 kg

DRUGS (1)
  1. CLARITIN [Suspect]
     Active Substance: LORATADINE
     Indication: NASOPHARYNGITIS
     Dosage: 1 DF, ONCE
     Route: 048
     Dates: start: 20151030, end: 20151030

REACTIONS (4)
  - Increased viscosity of upper respiratory secretion [Recovered/Resolved]
  - Off label use [None]
  - Drug ineffective [None]
  - Epistaxis [Not Recovered/Not Resolved]

NARRATIVE: CASE EVENT DATE: 20151101
